FAERS Safety Report 8508470-4 (Version None)
Quarter: 2012Q3

REPORT INFORMATION
  Report Type: 
  Country: None (occurrence: None)
  Receive Date: 20120713
  Receipt Date: 20120709
  Transmission Date: 20120928
  Serious: Yes (Hospitalization)
  Sender: FDA-Public Use
  Company Number: US-BAYER-2012-015158

PATIENT
  Age: 17 Year
  Sex: Female
  Weight: 84.354 kg

DRUGS (7)
  1. NATALCARE [Concomitant]
  2. YAZ [Suspect]
     Indication: CONTRACEPTION
  3. YASMIN [Suspect]
     Indication: ACNE
     Dosage: UNK
     Dates: start: 20070119
  4. YASMIN [Suspect]
     Indication: CONTRACEPTION
  5. COLACE [Concomitant]
  6. YAZ [Suspect]
     Indication: ACNE
     Dosage: UNK
     Dates: start: 20070301, end: 20070901
  7. MOTRIN [Concomitant]

REACTIONS (3)
  - CHOLELITHIASIS [None]
  - CHOLECYSTITIS [None]
  - PAIN [None]
